FAERS Safety Report 4958273-2 (Version None)
Quarter: 2006Q1

REPORT INFORMATION
  Report Type: 
  Country: None (occurrence: None)
  Receive Date: 20060330
  Receipt Date: 20060320
  Transmission Date: 20060701
  Serious: Yes (Other)
  Sender: FDA-Public Use
  Company Number: PHBS2006CH04356

PATIENT
  Age: 83 Year
  Sex: Male

DRUGS (2)
  1. LAMISIL [Suspect]
     Indication: FUNGAL SKIN INFECTION
     Dosage: 250 MG/D
     Route: 048
     Dates: start: 20060109, end: 20060206
  2. TRANSIPEG                               /FRA/ [Concomitant]
     Route: 065

REACTIONS (3)
  - HEPATIC FUNCTION ABNORMAL [None]
  - HEPATOMEGALY [None]
  - WEIGHT INCREASED [None]
